FAERS Safety Report 25453504 (Version 1)
Quarter: 2025Q2

REPORT INFORMATION
  Report Type: Spontaneous
  Country: JP (occurrence: JP)
  Receive Date: 20250619
  Receipt Date: 20250619
  Transmission Date: 20250716
  Serious: Yes (Other)
  Sender: BAXTER
  Company Number: JP-shionogi-202500006084

PATIENT
  Age: 3 Decade
  Sex: Male

DRUGS (2)
  1. CYCLOPHOSPHAMIDE [Suspect]
     Active Substance: CYCLOPHOSPHAMIDE
     Indication: Rhabdomyosarcoma
     Route: 065
  2. MESNA [Suspect]
     Active Substance: MESNA
     Indication: Rhabdomyosarcoma
     Route: 065

REACTIONS (1)
  - Cystitis haemorrhagic [Unknown]
